FAERS Safety Report 14556534 (Version 1)
Quarter: 2018Q1

REPORT INFORMATION
  Report Type: Spontaneous
  Country: US (occurrence: US)
  Receive Date: 20180219
  Receipt Date: 20180219
  Transmission Date: 20180509
  Serious: Yes (Hospitalization)
  Sender: FDA-Public Use
  Company Number: None

PATIENT
  Age: 53 Year
  Sex: Female

DRUGS (32)
  1. GILENYA [Suspect]
     Active Substance: FINGOLIMOD HYDROCHLORIDE
     Indication: MULTIPLE SCLEROSIS
     Route: 048
     Dates: start: 20131204
  2. VICODIN [Concomitant]
     Active Substance: ACETAMINOPHEN\HYDROCODONE BITARTRATE
  3. TRAZODONE [Concomitant]
     Active Substance: TRAZODONE HYDROCHLORIDE
  4. TIZANIDINE. [Concomitant]
     Active Substance: TIZANIDINE
  5. TOPIRAMATE. [Concomitant]
     Active Substance: TOPIRAMATE
  6. TOPAMAX [Concomitant]
     Active Substance: TOPIRAMATE
  7. ESGIC-PLUS [Concomitant]
     Active Substance: ACETAMINOPHEN\BUTALBITAL\CAFFEINE
  8. BUSPIRONE [Concomitant]
     Active Substance: BUSPIRONE HYDROCHLORIDE
  9. LORAZEPAM. [Concomitant]
     Active Substance: LORAZEPAM
  10. PREDNISONE. [Concomitant]
     Active Substance: PREDNISONE
  11. ZANAFLEX [Concomitant]
     Active Substance: TIZANIDINE HYDROCHLORIDE
  12. LORTAB [Concomitant]
     Active Substance: ACETAMINOPHEN\HYDROCODONE BITARTRATE
  13. CEFUROXIME. [Concomitant]
     Active Substance: CEFUROXIME
  14. NASONEX [Concomitant]
     Active Substance: MOMETASONE FUROATE
  15. REQUIP [Concomitant]
     Active Substance: ROPINIROLE HYDROCHLORIDE
  16. SINGULAIR [Concomitant]
     Active Substance: MONTELUKAST SODIUM
  17. ZONEGRAN [Concomitant]
     Active Substance: ZONISAMIDE
  18. SYNTHROID [Concomitant]
     Active Substance: LEVOTHYROXINE SODIUM
  19. SOMA [Concomitant]
     Active Substance: CARISOPRODOL
  20. AMBIEN [Concomitant]
     Active Substance: ZOLPIDEM TARTRATE
  21. SKELAXIN [Concomitant]
     Active Substance: METAXALONE
  22. LEXAPRO [Concomitant]
     Active Substance: ESCITALOPRAM OXALATE
  23. METAXALONE. [Concomitant]
     Active Substance: METAXALONE
  24. COPAXONE [Concomitant]
     Active Substance: GLATIRAMER ACETATE
  25. ADVAIR DISKU [Concomitant]
  26. HYDROCO/APAP [Concomitant]
     Active Substance: ACETAMINOPHEN\HYDROCODONE
  27. OMEGA 3 [Concomitant]
     Active Substance: OMEGA-3 FATTY ACIDS
  28. ULTRACET [Concomitant]
     Active Substance: ACETAMINOPHEN\TRAMADOL HYDROCHLORIDE
  29. RELPAX [Concomitant]
     Active Substance: ELETRIPTAN HYDROBROMIDE
  30. TRAMADOL HCL [Concomitant]
     Active Substance: TRAMADOL HYDROCHLORIDE
  31. APAP/CODEINE [Concomitant]
     Active Substance: ACETAMINOPHEN\CODEINE PHOSPHATE
  32. LEVOTHYROXIN [Concomitant]
     Active Substance: LEVOTHYROXINE

REACTIONS (3)
  - Skin burning sensation [None]
  - Drug dose omission [None]
  - Contusion [None]

NARRATIVE: CASE EVENT DATE: 201802
